FAERS Safety Report 4654454-6 (Version None)
Quarter: 2005Q2

REPORT INFORMATION
  Report Type: 
  Country: None (occurrence: None)
  Receive Date: 20050404
  Receipt Date: 20050106
  Transmission Date: 20051028
  Serious: No
  Sender: FDA-Public Use
  Company Number: USA050187652

PATIENT
  Age: 48 Year
  Sex: Female

DRUGS (8)
  1. CYMBALTA [Suspect]
     Indication: DEPRESSION
     Dosage: 60 MG
     Dates: start: 20040101
  2. STRATTERA [Concomitant]
  3. GEODON [Concomitant]
  4. TRAZODONE [Concomitant]
  5. RITALIN [Concomitant]
  6. VALTREX [Concomitant]
  7. ZELNORM [Concomitant]
  8. WELLBUTRIN [Concomitant]

REACTIONS (1)
  - FOOD ALLERGY [None]
